FAERS Safety Report 11685171 (Version 1)
Quarter: 2015Q4

REPORT INFORMATION
  Report Type: Spontaneous
  Country: US (occurrence: None)
  Receive Date: 20151029
  Receipt Date: 20151029
  Transmission Date: 20160304
  Serious: Yes (Other)
  Sender: FDA-Public Use
  Company Number: None

PATIENT
  Age: 22 Year
  Sex: Male
  Weight: 89 kg

DRUGS (1)
  1. ELVITEGR COBICIST EMTRIC TENOF [Suspect]
     Active Substance: COBICISTAT\ELVITEGRAVIR\EMTRICITABINE\TENOFOVIR
     Indication: ANTIRETROVIRAL THERAPY
     Route: 048
     Dates: start: 20150928, end: 20151007

REACTIONS (7)
  - Nausea [None]
  - Headache [None]
  - Muscular weakness [None]
  - Blood creatine phosphokinase increased [None]
  - Alanine aminotransferase increased [None]
  - Alcohol use [None]
  - Vomiting [None]

NARRATIVE: CASE EVENT DATE: 20151007
